FAERS Safety Report 7665906-9 (Version None)
Quarter: 2011Q3

REPORT INFORMATION
  Report Type: 
  Country: None (occurrence: None)
  Receive Date: 20110806
  Receipt Date: 20110319
  Transmission Date: 20111222
  Serious: Yes (Other)
  Sender: FDA-Public Use
  Company Number: US-ABBOTT-11P-163-0714323-00

PATIENT
  Sex: Female
  Weight: 54.48 kg

DRUGS (2)
  1. UNKNOWN ANTIDEPRESSANT [Suspect]
     Indication: PRODUCT USED FOR UNKNOWN INDICATION
     Dates: start: 20110318
  2. NIASPAN [Suspect]
     Indication: LOW DENSITY LIPOPROTEIN INCREASED
     Dates: start: 20101101, end: 20110301

REACTIONS (5)
  - MUSCULOSKELETAL CHEST PAIN [None]
  - NAUSEA [None]
  - HEPATIC ENZYME INCREASED [None]
  - HEART RATE INCREASED [None]
  - GALLBLADDER DISORDER [None]
